FAERS Safety Report 6177693-4 (Version None)
Quarter: 2009Q2

REPORT INFORMATION
  Report Type: 
  Country: None (occurrence: None)
  Receive Date: 20090501
  Receipt Date: 20090501
  Transmission Date: 20091009
  Serious: Yes (Life-Threatening, Hospitalization)
  Sender: FDA-Public Use
  Company Number: None

PATIENT
  Sex: Female
  Weight: 72.6 kg

DRUGS (6)
  1. TEMODAR [Suspect]
     Indication: ANAPLASTIC ASTROCYTOMA
     Dosage: VAR.
     Dates: start: 20080201, end: 20081001
  2. DESOGESTREL AND ETHINYL ESTRADIOL [Concomitant]
  3. XRT [Concomitant]
  4. DAPSONE [Concomitant]
  5. CIPRO [Concomitant]
  6. FLUCONAZOLE [Concomitant]

REACTIONS (2)
  - APLASTIC ANAEMIA [None]
  - BONE MARROW FAILURE [None]
